FAERS Safety Report 26004263 (Version 1)
Quarter: 2025Q4

REPORT INFORMATION
  Report Type: Spontaneous
  Country: EU (occurrence: EU)
  Receive Date: 20251106
  Receipt Date: 20251106
  Transmission Date: 20260118
  Serious: Yes (Other)
  Sender: AMGEN
  Company Number: None

PATIENT
  Age: 71 Year
  Sex: Female

DRUGS (8)
  1. IVABRADINE [Suspect]
     Active Substance: IVABRADINE
     Indication: Product used for unknown indication
     Dosage: FOR 5 TO 6 MONTHS
     Route: 065
  2. AMLODIPINE\ATORVASTATIN\PERINDOPRIL [Suspect]
     Active Substance: AMLODIPINE\ATORVASTATIN\PERINDOPRIL
     Indication: Product used for unknown indication
     Dosage: ATORVASTATIN/PERINDOPRIL/AMLODIPINE AT A DOSE OF 20 MG/10 MG/5 MG ONCE MORNINGS FOR 2 TO 3 YEARS
     Route: 065
  3. METFORMIN [Suspect]
     Active Substance: METFORMIN HYDROCHLORIDE
     Indication: Type 2 diabetes mellitus
     Dosage: 500 MG
     Route: 065
  4. LEVOTHYROXINE [Suspect]
     Active Substance: LEVOTHYROXINE
     Indication: Post procedural hypothyroidism
     Dosage: FOR 8 YEARS
     Route: 065
  5. ASPIRIN [Suspect]
     Active Substance: ASPIRIN
     Indication: Antiplatelet therapy
     Dosage: FOR 2 TO 3 YEARS
     Route: 065
  6. CHLORTHALIDONE [Suspect]
     Active Substance: CHLORTHALIDONE
     Indication: Product used for unknown indication
     Dosage: ONCE IN THE MORNING FROM 5 TO 6 MONTHS
     Route: 065
  7. ALLOPURINOL [Suspect]
     Active Substance: ALLOPURINOL
     Indication: Product used for unknown indication
     Dosage: FOR 4 YEARS
     Route: 065
  8. AMLODIPINE [Suspect]
     Active Substance: AMLODIPINE BESYLATE
     Indication: Product used for unknown indication
     Dosage: FOR 5 TO 6 MONTHS
     Route: 065

REACTIONS (2)
  - Malignant melanoma [Unknown]
  - Product contamination [Unknown]
